FAERS Safety Report 8273364-9 (Version None)
Quarter: 2012Q2

REPORT INFORMATION
  Report Type: 
  Country: None (occurrence: None)
  Receive Date: 20120411
  Receipt Date: 20120403
  Transmission Date: 20120825
  Serious: Yes (Hospitalization)
  Sender: FDA-Public Use
  Company Number: PHHO2012US005353

PATIENT
  Sex: Female
  Weight: 76.1 kg

DRUGS (6)
  1. CALCIUM CARBONATE [Concomitant]
     Indication: SUPPLEMENTATION THERAPY
     Route: 048
  2. IRON SUPPLEMENTS [Concomitant]
     Indication: SUPPLEMENTATION THERAPY
     Dosage: 1 DF, QD
     Route: 048
  3. MULTI-VITAMINS [Concomitant]
     Indication: SUPPLEMENTATION THERAPY
     Dosage: 1 DF, QD
     Route: 048
  4. AFINITOR [Suspect]
     Indication: METASTATIC RENAL CELL CARCINOMA
     Dosage: 10 MG, QD
     Route: 048
     Dates: start: 20120228
  5. STOOL SOFTENER [Concomitant]
     Indication: CONSTIPATION PROPHYLAXIS
     Route: 048
  6. ZANTAC [Concomitant]
     Dosage: 150 MG, BID
     Route: 048

REACTIONS (1)
  - CONFUSIONAL STATE [None]
